FAERS Safety Report 5963195-4 (Version None)
Quarter: 2008Q4

REPORT INFORMATION
  Report Type: 
  Country: None (occurrence: None)
  Receive Date: 20081124
  Receipt Date: 20081113
  Transmission Date: 20090506
  Serious: No
  Sender: FDA-Public Use
  Company Number: US-JNJFOC-20081103873

PATIENT
  Sex: Female
  Weight: 88.45 kg

DRUGS (3)
  1. DURAGESIC-100 [Suspect]
     Indication: SPINAL CORD INJURY
     Route: 062
  2. LORAZEPAM [Concomitant]
     Indication: ANXIETY
     Route: 048
  3. LYRICA [Concomitant]
     Indication: PAIN
     Route: 048

REACTIONS (3)
  - APPLICATION SITE ERYTHEMA [None]
  - INCORRECT DRUG ADMINISTRATION DURATION [None]
  - RASH ERYTHEMATOUS [None]
